FAERS Safety Report 10628931 (Version 2)
Quarter: 2015Q1

REPORT INFORMATION
  Report Type: Spontaneous
  Country: US (occurrence: US)
  Receive Date: 20141205
  Receipt Date: 20150109
  Transmission Date: 20150720
  Serious: No
  Sender: FDA-Public Use
  Company Number: US-BRISTOL-MYERS SQUIBB COMPANY-21649009

PATIENT
  Age: 40 Year
  Sex: Female

DRUGS (1)
  1. KENALOG-40 [Suspect]
     Active Substance: TRIAMCINOLONE ACETONIDE
     Indication: PRODUCT USED FOR UNKNOWN INDICATION
     Dosage: UNK
     Route: 065
     Dates: start: 201409

REACTIONS (11)
  - Genital swelling [Unknown]
  - Oesophageal spasm [Not Recovered/Not Resolved]
  - Joint swelling [Unknown]
  - Contusion [Unknown]
  - Confusional state [Unknown]
  - Disturbance in attention [Unknown]
  - Dizziness [Unknown]
  - Dysmenorrhoea [Unknown]
  - Pain [Unknown]
  - Mood swings [Unknown]
  - Vertigo [Unknown]

NARRATIVE: CASE EVENT DATE: 201412
